FAERS Safety Report 15900373 (Version 1)
Quarter: 2019Q1

REPORT INFORMATION
  Report Type: Spontaneous
  Country: ES (occurrence: ES)
  Receive Date: 20190201
  Receipt Date: 20190201
  Transmission Date: 20190417
  Serious: Yes (Life-Threatening, Hospitalization)
  Sender: FDA-Public Use
  Company Number: ES-BAYER-ES-2007-004001

PATIENT
  Age: 83 Year
  Sex: Male

DRUGS (2)
  1. ULTRAVIST [Suspect]
     Active Substance: IOPROMIDE
     Indication: DIAGNOSTIC PROCEDURE
     Dosage: 1 DF, ONCE
     Route: 042
     Dates: start: 20061124, end: 20061124
  2. CLAROGRAF [Suspect]
     Active Substance: IOPROMIDE
     Indication: DIAGNOSTIC PROCEDURE

REACTIONS (1)
  - Anaphylactic shock [Recovered/Resolved]

NARRATIVE: CASE EVENT DATE: 20061124
